FAERS Safety Report 17244143 (Version 1)
Quarter: 2020Q1

REPORT INFORMATION
  Report Type: Spontaneous
  Country: US (occurrence: US)
  Receive Date: 20200107
  Receipt Date: 20200107
  Transmission Date: 20200409
  Serious: No
  Sender: FDA-Public Use
  Company Number: US-GALDERMA-US19051242

PATIENT
  Age: 64 Year
  Sex: Female
  Weight: 109.77 kg

DRUGS (6)
  1. OTC PROBIOTICS [Concomitant]
     Indication: PRODUCT USED FOR UNKNOWN INDICATION
     Route: 065
  2. VITAMIN D [Concomitant]
     Active Substance: VITAMIN D NOS
     Indication: PRODUCT USED FOR UNKNOWN INDICATION
     Dosage: OTC
     Route: 065
  3. METRONIDAZOLE TOPICAL GEL, 0.75% [Suspect]
     Active Substance: METRONIDAZOLE
     Indication: VULVOVAGINAL DRYNESS
     Dosage: 0.75%
     Route: 061
     Dates: start: 201906
  4. METRONIDAZOLE TOPICAL GEL, 0.75% [Suspect]
     Active Substance: METRONIDAZOLE
     Indication: BACTERIAL INFECTION
     Dosage: 0.75%
     Route: 061
     Dates: start: 201906
  5. IMVEXXY ( ESTRADIOL) VAGINAL INSERT [Concomitant]
     Indication: VULVOVAGINAL DRYNESS
     Dosage: 4 PG
     Route: 065
     Dates: start: 20190717
  6. IRON TABLETS [Concomitant]
     Indication: PRODUCT USED FOR UNKNOWN INDICATION
     Route: 048

REACTIONS (4)
  - Drug ineffective for unapproved indication [Not Recovered/Not Resolved]
  - Condition aggravated [Not Recovered/Not Resolved]
  - Bacterial infection [Not Recovered/Not Resolved]
  - Product use in unapproved indication [Recovered/Resolved]

NARRATIVE: CASE EVENT DATE: 201906
